FAERS Safety Report 6921637-1 (Version None)
Quarter: 2010Q3

REPORT INFORMATION
  Report Type: 
  Country: None (occurrence: None)
  Receive Date: 20100812
  Receipt Date: 20100809
  Transmission Date: 20110219
  Serious: Yes (Life-Threatening, Other)
  Sender: FDA-Public Use
  Company Number: US-ROXANE LABORATORIES, INC.-2010-RO-01011RO

PATIENT

DRUGS (7)
  1. DEXAMETHASONE [Suspect]
     Indication: FOETAL CARDIAC DISORDER
     Route: 064
  2. DIGOXIN [Suspect]
     Indication: CARDIAC FAILURE
     Route: 064
  3. TERBUTALINE SULFATE [Suspect]
     Indication: FOETAL HEART RATE DECREASED
     Route: 064
  4. IMMUNE GLOBULIN NOS [Suspect]
     Indication: FOETAL CARDIAC DISORDER
     Route: 042
  5. IMMUNE GLOBULIN NOS [Suspect]
     Indication: ECHOCARDIOGRAM ABNORMAL
  6. IMMUNE GLOBULIN NOS [Suspect]
     Indication: ATRIAL FLUTTER
  7. IMMUNE GLOBULIN NOS [Suspect]
     Indication: BRADYCARDIA FOETAL

REACTIONS (3)
  - ATRIAL FLUTTER [None]
  - CARDIAC FAILURE [None]
  - OLIGOHYDRAMNIOS [None]
